FAERS Safety Report 23695535 (Version 2)
Quarter: 2024Q2

REPORT INFORMATION
  Report Type: Spontaneous
  Country: CA (occurrence: CA)
  Receive Date: 20240402
  Receipt Date: 20240418
  Transmission Date: 20240716
  Serious: Yes (Hospitalization, Other)
  Sender: FDA-Public Use
  Company Number: CA-CELLTRION INC.-2023CA025380

PATIENT

DRUGS (3)
  1. INFLECTRA [Suspect]
     Active Substance: INFLIXIMAB-DYYB
     Indication: Crohn^s disease
     Dosage: 400 MG, AT WEEK 0, 2, AND 6, EVERY 4 WEEKS
     Route: 042
     Dates: start: 20240220
  2. INFLECTRA [Suspect]
     Active Substance: INFLIXIMAB-DYYB
     Dosage: 400 MG, AT WEEK 0, 2, AND 6 (PARTIAL DOSE ADMINISTERED)
     Route: 042
     Dates: start: 20240322, end: 20240322
  3. PREDNISONE [Concomitant]
     Active Substance: PREDNISONE
     Dosage: UNK

REACTIONS (27)
  - Wheezing [Unknown]
  - Dyspnoea [Recovering/Resolving]
  - Pyrexia [Unknown]
  - White blood cell count increased [Unknown]
  - Oropharyngeal pain [Unknown]
  - Chronic obstructive pulmonary disease [Unknown]
  - Intervertebral disc protrusion [Unknown]
  - Pain [Unknown]
  - Dysarthria [Unknown]
  - Peripheral swelling [Unknown]
  - Erythema [Unknown]
  - Chest pain [Not Recovered/Not Resolved]
  - Dry mouth [Unknown]
  - Swollen tongue [Unknown]
  - Blood pressure decreased [Unknown]
  - Chest discomfort [Not Recovered/Not Resolved]
  - Pruritus [Recovering/Resolving]
  - Eye pruritus [Not Recovered/Not Resolved]
  - Lacrimation increased [Not Recovered/Not Resolved]
  - Flushing [Unknown]
  - Paraesthesia [Not Recovered/Not Resolved]
  - Pain in extremity [Not Recovered/Not Resolved]
  - Musculoskeletal stiffness [Not Recovered/Not Resolved]
  - Hypoaesthesia [Not Recovered/Not Resolved]
  - Peripheral coldness [Not Recovered/Not Resolved]
  - Oxygen saturation decreased [Recovered/Resolved]
  - Off label use [Unknown]

NARRATIVE: CASE EVENT DATE: 20240201
